FAERS Safety Report 5195476-9 (Version None)
Quarter: 2006Q4

REPORT INFORMATION
  Report Type: 
  Country: None (occurrence: None)
  Receive Date: 20061222
  Receipt Date: 20061222
  Transmission Date: 20070319
  Serious: Yes (Hospitalization)
  Sender: FDA-Public Use
  Company Number: None

PATIENT
  Sex: Female
  Weight: 67.1324 kg

DRUGS (1)
  1. MIDODRINE [Suspect]
     Indication: ORTHOSTATIC HYPOTENSION
     Dosage: 5 MG TID PO
     Route: 048
     Dates: end: 20061220

REACTIONS (2)
  - BRADYCARDIA [None]
  - SYNCOPE [None]
